FAERS Safety Report 6066181-1 (Version None)
Quarter: 2009Q1

REPORT INFORMATION
  Report Type: 
  Country: None (occurrence: None)
  Receive Date: 20090205
  Receipt Date: 20090127
  Transmission Date: 20090719
  Serious: Yes (Other)
  Sender: FDA-Public Use
  Company Number: PHHY2009AR03084

PATIENT
  Sex: Female

DRUGS (1)
  1. EXELON [Suspect]
     Indication: AMNESIA
     Dosage: 10 CM PATCH ONCE DAILY
     Route: 062
     Dates: start: 20081201

REACTIONS (2)
  - AGITATION [None]
  - PALPITATIONS [None]
